FAERS Safety Report 7817638-1 (Version None)
Quarter: 2011Q4

REPORT INFORMATION
  Report Type: 
  Country: None (occurrence: None)
  Receive Date: 20111017
  Receipt Date: 20111010
  Transmission Date: 20120403
  Serious: Yes (Other)
  Sender: FDA-Public Use
  Company Number: US-AMGEN-USASP2011052277

PATIENT
  Sex: Female

DRUGS (4)
  1. ENBREL [Suspect]
     Indication: ANKYLOSING SPONDYLITIS
     Dosage: 50 MG, QWK
     Dates: start: 20100101
  2. LOSARTAN POTASSIUM [Concomitant]
     Dosage: UNK MG, UNK
  3. METHOTREXATE [Concomitant]
     Dosage: UNK
  4. LOVASTATIN [Concomitant]
     Dosage: UNK MG, UNK

REACTIONS (5)
  - FALL [None]
  - MYALGIA [None]
  - MUSCLE SPASMS [None]
  - TENDON OPERATION [None]
  - GAIT DISTURBANCE [None]
